FAERS Safety Report 9293186 (Version 1)
Quarter: 2013Q2

REPORT INFORMATION
  Report Type: Spontaneous
  Country: IT (occurrence: IT)
  Receive Date: 20130516
  Receipt Date: 20130516
  Transmission Date: 20140414
  Serious: Yes (Death)
  Sender: FDA-Public Use
  Company Number: IT-PFIZER INC-2013146008

PATIENT
  Sex: Male

DRUGS (1)
  1. ECALTA [Suspect]
     Indication: SYSTEMIC CANDIDA

REACTIONS (1)
  - Death [Fatal]
